FAERS Safety Report 16430515 (Version 1)
Quarter: 2019Q2

REPORT INFORMATION
  Report Type: Spontaneous
  Country: US (occurrence: US)
  Receive Date: 20190614
  Receipt Date: 20190614
  Transmission Date: 20190711
  Serious: No
  Sender: FDA-Public Use
  Company Number: US-ALKERMES INC.-ALK-2019-003053

PATIENT
  Age: 25 Year
  Sex: Female
  Weight: 87.98 kg

DRUGS (3)
  1. VIVITROL [Suspect]
     Active Substance: NALTREXONE
     Indication: DRUG DEPENDENCE
     Dosage: 380 MG, QMO
     Route: 030
     Dates: start: 20190514
  2. ANESTHETICS [Suspect]
     Active Substance: UNSPECIFIED INGREDIENT
     Indication: PRODUCT USED FOR UNKNOWN INDICATION
  3. SEROQUEL [Suspect]
     Active Substance: QUETIAPINE FUMARATE
     Indication: WITHDRAWAL SYNDROME

REACTIONS (9)
  - Parosmia [Recovering/Resolving]
  - Nausea [Recovering/Resolving]
  - Chills [Recovering/Resolving]
  - Feeling cold [Recovering/Resolving]
  - Decreased appetite [Recovering/Resolving]
  - Dysgeusia [Recovering/Resolving]
  - Withdrawal syndrome [Recovering/Resolving]
  - Restless legs syndrome [Unknown]
  - Abdominal pain upper [Recovering/Resolving]

NARRATIVE: CASE EVENT DATE: 2019
